FAERS Safety Report 23785561 (Version 2)
Quarter: 2024Q2

REPORT INFORMATION
  Report Type: Spontaneous
  Country: JP (occurrence: JP)
  Receive Date: 20240425
  Receipt Date: 20240528
  Transmission Date: 20240716
  Serious: Yes (Other)
  Sender: FDA-Public Use
  Company Number: JP-002147023-NVSJ2024JP004883

PATIENT
  Age: 81 Year
  Sex: Female

DRUGS (1)
  1. IMATINIB MESYLATE [Suspect]
     Active Substance: IMATINIB MESYLATE
     Indication: Angiosarcoma metastatic
     Dosage: UNK
     Route: 065

REACTIONS (6)
  - Angiosarcoma metastatic [Unknown]
  - Malignant neoplasm progression [Unknown]
  - Tumour haemorrhage [Unknown]
  - Intra-abdominal haemorrhage [Unknown]
  - Anaemia [Unknown]
  - Ascites [Unknown]
